APPROVED DRUG PRODUCT: ELIMITE
Active Ingredient: PERMETHRIN
Strength: 5%
Dosage Form/Route: CREAM;TOPICAL
Application: N019855 | Product #001 | TE Code: AB
Applicant: AUROBINDO PHARMA USA INC
Approved: Aug 25, 1989 | RLD: Yes | RS: No | Type: RX